FAERS Safety Report 19433053 (Version 4)
Quarter: 2021Q3

REPORT INFORMATION
  Report Type: Spontaneous
  Country: CH (occurrence: CH)
  Receive Date: 20210618
  Receipt Date: 20210730
  Transmission Date: 20211014
  Serious: Yes (Hospitalization, Other)
  Sender: FDA-Public Use
  Company Number: CH-TEVA-2021-CH-1923780

PATIENT
  Age: 47 Year
  Sex: Male

DRUGS (2)
  1. FEXOFENADIN MEPHA [Suspect]
     Active Substance: FEXOFENADINE HYDROCHLORIDE
     Dosage: FEXOFENADIN?MEPHA
     Dates: start: 2020, end: 202105
  2. RISPERIDONE. [Suspect]
     Active Substance: RISPERIDONE
     Dates: start: 2021, end: 2021

REACTIONS (12)
  - Chest discomfort [Unknown]
  - Sleep disorder [Recovered/Resolved]
  - Nervousness [Unknown]
  - Headache [Unknown]
  - Insomnia [Recovering/Resolving]
  - Abnormal dreams [Unknown]
  - Dry mouth [Unknown]
  - Dizziness [Unknown]
  - Histrionic personality disorder [Unknown]
  - Nightmare [Recovering/Resolving]
  - Palpitations [Unknown]
  - Delusion [Unknown]

NARRATIVE: CASE EVENT DATE: 2021
